FAERS Safety Report 8584156 (Version 3)
Quarter: 2012Q4

REPORT INFORMATION
  Report Type: 
  Country: US (occurrence: US)
  Receive Date: 20120529
  Receipt Date: 20121219
  Transmission Date: 20130627
  Serious: Yes (Death, Hospitalization)
  Sender: FDA-Public Use
  Company Number: US-GILEAD-2012-0055183

PATIENT
  Sex: Female

DRUGS (5)
  1. LETAIRIS [Suspect]
     Indication: PULMONARY HYPERTENSION
     Dosage: 10 mg, UNK
     Route: 048
  2. LETAIRIS [Suspect]
     Indication: CARDIAC VALVE DISEASE
     Dosage: 5 mg, UNK
     Route: 048
     Dates: start: 20101207
  3. LETAIRIS [Suspect]
     Indication: LEFT VENTRICULAR DYSFUNCTION
  4. LETAIRIS [Suspect]
     Indication: ATRIAL FIBRILLATION
  5. LETAIRIS [Suspect]
     Indication: SLEEP APNOEA SYNDROME

REACTIONS (5)
  - Cor pulmonale [Fatal]
  - Sleep apnoea syndrome [Fatal]
  - Cardiac valve disease [Fatal]
  - Terminal state [Unknown]
  - General physical health deterioration [Unknown]
